FAERS Safety Report 24681236 (Version 1)
Quarter: 2024Q4

REPORT INFORMATION
  Report Type: Spontaneous
  Country: BR (occurrence: BR)
  Receive Date: 20241129
  Receipt Date: 20241129
  Transmission Date: 20250115
  Serious: Yes (Other)
  Sender: ALEXION PHARMACEUTICALS
  Company Number: BR-ASTRAZENECA-202411SAM022812BR

PATIENT
  Age: 5 Year

DRUGS (18)
  1. KOSELUGO [Suspect]
     Active Substance: SELUMETINIB
     Dosage: 20 MILLIGRAM
     Route: 065
  2. KOSELUGO [Suspect]
     Active Substance: SELUMETINIB
     Dosage: 20 MILLIGRAM
  3. KOSELUGO [Suspect]
     Active Substance: SELUMETINIB
     Dosage: 20 MILLIGRAM
     Route: 065
  4. KOSELUGO [Suspect]
     Active Substance: SELUMETINIB
     Dosage: 20 MILLIGRAM
  5. KOSELUGO [Suspect]
     Active Substance: SELUMETINIB
     Dosage: 10 MILLIGRAM
     Route: 065
  6. KOSELUGO [Suspect]
     Active Substance: SELUMETINIB
     Dosage: 10 MILLIGRAM
  7. KOSELUGO [Suspect]
     Active Substance: SELUMETINIB
     Dosage: 10 MILLIGRAM
     Route: 065
  8. KOSELUGO [Suspect]
     Active Substance: SELUMETINIB
     Dosage: 10 MILLIGRAM
  9. KOSELUGO [Suspect]
     Active Substance: SELUMETINIB
     Dosage: 20 MILLIGRAM
     Route: 065
  10. KOSELUGO [Suspect]
     Active Substance: SELUMETINIB
     Dosage: 20 MILLIGRAM
  11. KOSELUGO [Suspect]
     Active Substance: SELUMETINIB
     Dosage: 20 MILLIGRAM
     Route: 065
  12. KOSELUGO [Suspect]
     Active Substance: SELUMETINIB
     Dosage: 20 MILLIGRAM
  13. GABAPENTIN [Concomitant]
     Active Substance: GABAPENTIN
     Dosage: 15 KILOGRAM, QD
     Route: 065
  14. GABAPENTIN [Concomitant]
     Active Substance: GABAPENTIN
     Dosage: 15 KILOGRAM, QD
  15. GABAPENTIN [Concomitant]
     Active Substance: GABAPENTIN
     Dosage: 60 KILOGRAM, QD
     Route: 065
  16. GABAPENTIN [Concomitant]
     Active Substance: GABAPENTIN
     Dosage: 60 KILOGRAM, QD
  17. GABAPENTIN [Concomitant]
     Active Substance: GABAPENTIN
     Dosage: 72 KILOGRAM, QD
     Route: 065
  18. GABAPENTIN [Concomitant]
     Active Substance: GABAPENTIN
     Dosage: 72 KILOGRAM, QD

REACTIONS (6)
  - Seizure [Unknown]
  - Headache [Not Recovered/Not Resolved]
  - Nausea [Not Recovered/Not Resolved]
  - Abdominal pain [Not Recovered/Not Resolved]
  - Hyperphagia [Unknown]
  - Vertigo [Unknown]
